FAERS Safety Report 6439927-8 (Version None)
Quarter: 2009Q4

REPORT INFORMATION
  Report Type: 
  Country: None (occurrence: None)
  Receive Date: 20091113
  Receipt Date: 20091105
  Transmission Date: 20100525
  Serious: Yes (Hospitalization)
  Sender: FDA-Public Use
  Company Number: FR-ABBOTT-09P-056-0607006-00

PATIENT
  Age: 69 Year
  Sex: Male

DRUGS (1)
  1. DEPAKENE [Suspect]
     Indication: CONVULSION
     Route: 048
     Dates: start: 20020101, end: 20090801

REACTIONS (2)
  - DEMENTIA [None]
  - HYPONATRAEMIA [None]
